FAERS Safety Report 8410873-3 (Version None)
Quarter: 2012Q2

REPORT INFORMATION
  Report Type: 
  Country: None (occurrence: None)
  Receive Date: 20120605
  Receipt Date: 20120530
  Transmission Date: 20120825
  Serious: Yes (Other)
  Sender: FDA-Public Use
  Company Number: PHEH2012US011049

PATIENT
  Sex: Male

DRUGS (1)
  1. CLOZARIL [Suspect]
     Route: 048

REACTIONS (2)
  - ACCIDENTAL EXPOSURE [None]
  - LOSS OF CONSCIOUSNESS [None]
